FAERS Safety Report 6902415-6 (Version None)
Quarter: 2010Q3

REPORT INFORMATION
  Report Type: 
  Country: None (occurrence: None)
  Receive Date: 20100803
  Receipt Date: 20080523
  Transmission Date: 20110219
  Serious: Yes (Other)
  Sender: FDA-Public Use
  Company Number: US-PFIZER INC-2008045145

PATIENT
  Sex: Female
  Weight: 73.9 kg

DRUGS (9)
  1. LYRICA [Suspect]
     Indication: FIBROMYALGIA
     Dates: start: 20071201, end: 20071201
  2. ZOCOR [Concomitant]
  3. LEVOTHYROXINE [Concomitant]
  4. FUROSEMIDE [Concomitant]
  5. TRAMADOL HYDROCHLORIDE [Concomitant]
  6. KLOR-CON [Concomitant]
  7. RANITIDINE [Concomitant]
  8. HYDROCODONE BITARTRATE [Concomitant]
  9. PRINIVIL [Concomitant]

REACTIONS (6)
  - LIP SWELLING [None]
  - MIOSIS [None]
  - OEDEMA PERIPHERAL [None]
  - SWELLING [None]
  - SWELLING FACE [None]
  - VITAMIN D DEFICIENCY [None]
